FAERS Safety Report 9494357 (Version 4)
Quarter: 2014Q1

REPORT INFORMATION
  Report Type: Report from Study
  Country: HU (occurrence: HU)
  Receive Date: 20130903
  Receipt Date: 20140128
  Transmission Date: 20141002
  Serious: Yes (Hospitalization, Other)
  Sender: FDA-Public Use
  Company Number: HU-ROCHE-1011023

PATIENT
  Age: 50 Year
  Sex: Female
  Weight: 75 kg

DRUGS (3)
  1. PEG-INTERFERON ALFA 2A [Suspect]
     Indication: HEPATITIS C
     Route: 058
     Dates: start: 20110311, end: 20110618
  2. RIBAVIRIN [Suspect]
     Indication: HEPATITIS C
     Route: 048
     Dates: start: 20110311, end: 20110618
  3. METFORMIN [Concomitant]

REACTIONS (4)
  - Pneumonia [Recovering/Resolving]
  - Asthma [Not Recovered/Not Resolved]
  - Uterine haemorrhage [Recovering/Resolving]
  - Asthma [Recovering/Resolving]
